FAERS Safety Report 9144872 (Version 1)
Quarter: 2013Q1

REPORT INFORMATION
  Report Type: Spontaneous
  Country: US (occurrence: US)
  Receive Date: 20130307
  Receipt Date: 20130307
  Transmission Date: 20140127
  Serious: No
  Sender: FDA-Public Use
  Company Number: US-009507513-1303USA002426

PATIENT
  Age: 79 Year
  Sex: Female

DRUGS (3)
  1. ZETIA [Suspect]
  2. LISINOPRIL [Concomitant]
  3. ASPIRIN [Concomitant]

REACTIONS (1)
  - Pain in extremity [Unknown]
